FAERS Safety Report 8715181 (Version 4)
Quarter: 2012Q4

REPORT INFORMATION
  Report Type: 
  Country: JP (occurrence: JP)
  Receive Date: 20120809
  Receipt Date: 20121017
  Transmission Date: 20130627
  Serious: Yes (Hospitalization)
  Sender: FDA-Public Use
  Company Number: PHHY2012JP068637

PATIENT
  Age: 55 Year
  Sex: Male

DRUGS (3)
  1. CICLOSPORIN [Suspect]
     Indication: LIVER TRANSPLANT
  2. MYCOPHENOLATE MOFETIL [Concomitant]
     Indication: LIVER TRANSPLANT
  3. METHYLPREDNISOLONE [Concomitant]
     Indication: LIVER TRANSPLANT

REACTIONS (3)
  - Hepatic artery embolism [Recovering/Resolving]
  - Embolism venous [Recovering/Resolving]
  - Acute myocardial infarction [Recovering/Resolving]
